FAERS Safety Report 12282233 (Version 2)
Quarter: 2016Q2

REPORT INFORMATION
  Report Type: Spontaneous
  Country: US (occurrence: US)
  Receive Date: 20160419
  Receipt Date: 20160505
  Transmission Date: 20160815
  Serious: No
  Sender: FDA-Public Use
  Company Number: US-PFIZER INC-2016186869

PATIENT
  Age: 65 Year
  Sex: Female

DRUGS (1)
  1. IBRANCE [Suspect]
     Active Substance: PALBOCICLIB
     Dosage: 100 MG, CYCLIC, 3 WEEKS ON AND 1 WEEK OFF
     Dates: start: 20160127

REACTIONS (2)
  - Oral pain [Recovered/Resolved]
  - Stomatitis [Recovered/Resolved]
